FAERS Safety Report 6490896-4 (Version None)
Quarter: 2009Q4

REPORT INFORMATION
  Report Type: 
  Country: None (occurrence: None)
  Receive Date: 20091211
  Receipt Date: 20091201
  Transmission Date: 20100525
  Serious: Yes (Other)
  Sender: FDA-Public Use
  Company Number: US-WATSON-2009-10277

PATIENT
  Age: 70 Year
  Sex: Male

DRUGS (7)
  1. PRAVASTATIN SODIUM [Suspect]
     Indication: HYPERLIPIDAEMIA
     Dosage: UNK
  2. ATORVASTATIN CALCIUM [Suspect]
     Indication: HYPERLIPIDAEMIA
  3. CERIVASTATIN [Suspect]
     Indication: HYPERLIPIDAEMIA
  4. EZETIMIBE [Suspect]
     Indication: HYPERLIPIDAEMIA
  5. FLUVASTATIN [Suspect]
     Indication: HYPERLIPIDAEMIA
  6. ROSUVASTATIN [Suspect]
     Indication: HYPERLIPIDAEMIA
  7. SIMVASTATIN [Suspect]
     Indication: HYPERLIPIDAEMIA

REACTIONS (1)
  - AMYOTROPHIC LATERAL SCLEROSIS [None]
